FAERS Safety Report 20833887 (Version 1)
Quarter: 2022Q2

REPORT INFORMATION
  Report Type: Report from Study
  Country: DE (occurrence: DE)
  Receive Date: 20220516
  Receipt Date: 20220516
  Transmission Date: 20220721
  Serious: Yes (Other)
  Sender: FDA-Public Use
  Company Number: DE-KYOWAKIRIN-2022BKK006895

PATIENT

DRUGS (3)
  1. CRYSVITA [Suspect]
     Active Substance: BUROSUMAB-TWZA
     Indication: Hereditary hypophosphataemic rickets
     Dosage: 30 MG
     Route: 065
  2. IBUPROFEN [Concomitant]
     Active Substance: IBUPROFEN
     Indication: Product used for unknown indication
     Dosage: 400 MG,QD AS NEEDED
     Route: 065
     Dates: start: 20220504, end: 20220505
  3. PANTOPRAZOLE [Concomitant]
     Active Substance: PANTOPRAZOLE
     Indication: Product used for unknown indication
     Dosage: 20 MG QD, AS NEEDED
     Route: 065
     Dates: start: 20220504, end: 20220505

REACTIONS (1)
  - Surgery [Recovered/Resolved]

NARRATIVE: CASE EVENT DATE: 20220504
